FAERS Safety Report 9127096 (Version 1)
Quarter: 2013Q1

REPORT INFORMATION
  Report Type: Spontaneous
  Country: US (occurrence: US)
  Receive Date: 20130122
  Receipt Date: 20130122
  Transmission Date: 20140127
  Serious: No
  Sender: FDA-Public Use
  Company Number: US-MYLANLABS-2012S1000447

PATIENT
  Age: 69 Year
  Sex: Female
  Weight: 69.4 kg

DRUGS (3)
  1. LETROZOLE [Suspect]
     Indication: BREAST CANCER
     Route: 048
     Dates: start: 201108
  2. GLUCOSAMINE [Concomitant]
     Indication: ARTHRALGIA
  3. CALTRATE [Concomitant]

REACTIONS (1)
  - Hair growth abnormal [Not Recovered/Not Resolved]
